FAERS Safety Report 5593795-5 (Version None)
Quarter: 2008Q1

REPORT INFORMATION
  Report Type: 
  Country: None (occurrence: None)
  Receive Date: 20080116
  Receipt Date: 20071226
  Transmission Date: 20080703
  Serious: No
  Sender: FDA-Public Use
  Company Number: US-BOEHRINGER INGELHEIM PHARMACEUTICALS, INC.-2007-BP-26864BP

PATIENT
  Sex: Female

DRUGS (3)
  1. SPIRIVA [Suspect]
     Indication: CHRONIC OBSTRUCTIVE PULMONARY DISEASE
     Route: 055
     Dates: start: 20050101
  2. XANAX [Concomitant]
     Indication: ANXIETY
     Dosage: PRN
  3. HYDROCODONE [Concomitant]
     Indication: ARTHRITIS

REACTIONS (1)
  - VISUAL FIELD DEFECT [None]
